FAERS Safety Report 12912700 (Version 2)
Quarter: 2016Q4

REPORT INFORMATION
  Report Type: Spontaneous
  Country: US (occurrence: US)
  Receive Date: 20161104
  Receipt Date: 20161107
  Transmission Date: 20170207
  Serious: Yes (Hospitalization)
  Sender: FDA-Public Use
  Company Number: US-PFIZER INC-2016513098

PATIENT
  Age: 54 Year
  Sex: Male
  Weight: 66 kg

DRUGS (1)
  1. PHENYTOIN. [Suspect]
     Active Substance: PHENYTOIN
     Indication: TREMOR
     Dosage: 400 MG, 3X/DAY

REACTIONS (12)
  - Anticonvulsant drug level above therapeutic [Recovered/Resolved]
  - Dizziness [Recovering/Resolving]
  - Product use issue [Recovered/Resolved]
  - Abasia [Recovering/Resolving]
  - Intentional overdose [Recovered/Resolved]
  - Ataxia [Recovering/Resolving]
  - Somnolence [Recovering/Resolving]
  - Toxicity to various agents [Recovering/Resolving]
  - Vomiting [Recovering/Resolving]
  - Nystagmus [Recovering/Resolving]
  - Cardiomegaly [Recovering/Resolving]
  - Ischaemia [Recovering/Resolving]
